FAERS Safety Report 14703117 (Version 1)
Quarter: 2018Q2

REPORT INFORMATION
  Report Type: Spontaneous
  Country: FR (occurrence: FR)
  Receive Date: 20180402
  Receipt Date: 20180402
  Transmission Date: 20180711
  Serious: Yes (Other)
  Sender: FDA-Public Use
  Company Number: FR-MERCK KGAA-2044890

PATIENT
  Age: 51 Year
  Sex: Female

DRUGS (1)
  1. NOVOTHYROX [Suspect]
     Active Substance: LEVOTHYROXINE SODIUM
     Indication: PRODUCT USED FOR UNKNOWN INDICATION

REACTIONS (30)
  - Angiopathy [None]
  - Dysgeusia [None]
  - Blood thyroid stimulating hormone increased [None]
  - Insomnia [None]
  - Blood pressure increased [None]
  - Arthralgia [None]
  - Headache [None]
  - Arrhythmia [None]
  - Loss of personal independence in daily activities [None]
  - Dizziness [None]
  - Polyuria [None]
  - Irritability [None]
  - Feeling abnormal [None]
  - Antisocial behaviour [None]
  - Acne [None]
  - Thirst [None]
  - Somnolence [None]
  - Apathy [None]
  - Asthenia [None]
  - Myalgia [None]
  - Tinnitus [None]
  - Impaired driving ability [None]
  - Foaming at mouth [None]
  - Anxiety [None]
  - Personal relationship issue [None]
  - Loss of personal independence in daily activities [None]
  - Disturbance in attention [None]
  - Lacrimation increased [None]
  - Nausea [None]
  - Eye pruritus [None]

NARRATIVE: CASE EVENT DATE: 20170221
